FAERS Safety Report 4900964-3 (Version None)
Quarter: 2006Q1

REPORT INFORMATION
  Report Type: 
  Country: None (occurrence: None)
  Receive Date: 20060201
  Receipt Date: 20060111
  Transmission Date: 20060701
  Serious: Yes (Hospitalization)
  Sender: FDA-Public Use
  Company Number: ES200601004202

PATIENT
  Age: 83 Year
  Sex: Female

DRUGS (5)
  1. FORTEO [Suspect]
     Indication: OSTEOPOROSIS
     Dosage: 20 UG, DAILY (1/D), SUBCUTANEOUS
     Route: 058
     Dates: start: 20051001
  2. FORTEO PEN (250MCG/ML) [Concomitant]
  3. DISGREN (TRIFLUSAL) [Concomitant]
  4. LEXATIN (BROMAZEPAM) [Concomitant]
  5. HEPARIN [Concomitant]

REACTIONS (1)
  - GOUTY ARTHRITIS [None]
